FAERS Safety Report 22356696 (Version 4)
Quarter: 2024Q4

REPORT INFORMATION
  Report Type: Report from Study
  Country: US (occurrence: US)
  Receive Date: 20230523
  Receipt Date: 20241206
  Transmission Date: 20250115
  Serious: Yes (Other)
  Sender: NOVARTIS
  Company Number: US-002147023-NVSC2023US118041

PATIENT
  Age: 18 Year
  Sex: Male
  Weight: 87.09 kg

DRUGS (3)
  1. ILARIS [Suspect]
     Active Substance: CANAKINUMAB
     Indication: Pyrexia
     Dosage: 150 MG, Q 8 WEEKS
     Route: 058
     Dates: start: 20190111
  2. ILARIS [Suspect]
     Active Substance: CANAKINUMAB
     Dosage: 150 UNK
     Route: 058
     Dates: end: 202310
  3. ILARIS [Suspect]
     Active Substance: CANAKINUMAB
     Dosage: 150 MG, OTHER (Q 4 WEEKS)
     Route: 058

REACTIONS (9)
  - Pneumonia mycoplasmal [Recovered/Resolved]
  - Pyrexia [Recovered/Resolved]
  - Cough [Recovered/Resolved]
  - Dyspnoea [Recovered/Resolved]
  - Arthralgia [Unknown]
  - Inflammation [Unknown]
  - Gait disturbance [Unknown]
  - Pain [Unknown]
  - Gastroenteritis viral [Recovered/Resolved]

NARRATIVE: CASE EVENT DATE: 20241124
